FAERS Safety Report 9841379 (Version 1)
Quarter: 2014Q1

REPORT INFORMATION
  Report Type: Spontaneous
  Country: US (occurrence: US)
  Receive Date: 20140124
  Receipt Date: 20140124
  Transmission Date: 20141002
  Serious: No
  Sender: FDA-Public Use
  Company Number: US-BAYER-2014-012670

PATIENT
  Sex: Female

DRUGS (1)
  1. ALEVE CAPLET [Suspect]
     Dosage: 1 DF, QD
     Route: 048
     Dates: start: 20140110

REACTIONS (2)
  - Malaise [Not Recovered/Not Resolved]
  - Incorrect drug administration duration [None]
